FAERS Safety Report 5486021-9 (Version None)
Quarter: 2007Q4

REPORT INFORMATION
  Report Type: 
  Country: None (occurrence: None)
  Receive Date: 20071012
  Receipt Date: 20071001
  Transmission Date: 20080405
  Serious: Yes (Hospitalization)
  Sender: FDA-Public Use
  Company Number: 162369ISR

PATIENT
  Age: 33 Year
  Sex: Female

DRUGS (2)
  1. VALPROIC ACID [Suspect]
  2. CLOZAPINE [Suspect]
     Indication: SCHIZOPHRENIA

REACTIONS (3)
  - IDIOPATHIC THROMBOCYTOPENIC PURPURA [None]
  - SOMNOLENCE [None]
  - TACHYCARDIA [None]
